FAERS Safety Report 7902143-4 (Version None)
Quarter: 2011Q4

REPORT INFORMATION
  Report Type: 
  Country: None (occurrence: None)
  Receive Date: 20111108
  Receipt Date: 20111028
  Transmission Date: 20120403
  Serious: Yes (Other)
  Sender: FDA-Public Use
  Company Number: US-ASTRAZENECA-2011SE65397

PATIENT
  Age: 59 Year
  Sex: Female

DRUGS (2)
  1. MUSCLE RELAXERS [Suspect]
     Route: 065
  2. NEXIUM [Suspect]
     Route: 048

REACTIONS (9)
  - ABDOMINAL PAIN UPPER [None]
  - BACK DISORDER [None]
  - CARDIAC NEOPLASM UNSPECIFIED [None]
  - HAEMATEMESIS [None]
  - CARDIAC DISORDER [None]
  - PAIN [None]
  - VOMITING [None]
  - DYSPEPSIA [None]
  - DRUG DOSE OMISSION [None]
